FAERS Safety Report 9106765 (Version 1)
Quarter: 2013Q1

REPORT INFORMATION
  Report Type: Spontaneous
  Country: US (occurrence: US)
  Receive Date: 20130221
  Receipt Date: 20130221
  Transmission Date: 20140127
  Serious: No
  Sender: FDA-Public Use
  Company Number: US-BAYER-2013-014937

PATIENT
  Sex: Male

DRUGS (1)
  1. FINACEA [Suspect]

REACTIONS (5)
  - Application site paraesthesia [None]
  - Application site pain [None]
  - Pruritus [None]
  - Skin exfoliation [None]
  - Drug ineffective [None]
